FAERS Safety Report 13389462 (Version 1)
Quarter: 2017Q1

REPORT INFORMATION
  Report Type: Spontaneous
  Country: US (occurrence: US)
  Receive Date: 20170331
  Receipt Date: 20170331
  Transmission Date: 20170429
  Serious: No
  Sender: FDA-Public Use
  Company Number: US-009507513-1703USA006160

PATIENT
  Age: 54 Year
  Sex: Male
  Weight: 92.99 kg

DRUGS (4)
  1. PRINIVIL [Suspect]
     Active Substance: LISINOPRIL
     Route: 048
  2. ADVIL [Suspect]
     Active Substance: IBUPROFEN
     Indication: BACK PAIN
     Dosage: 200 MG, UNK
     Route: 048
  3. OMEGA-3 MARINE TRIGLYCERIDES [Concomitant]
     Active Substance: FISH OIL
     Indication: DEPRESSION
     Dosage: DOSE: 2400 MG, UNK
  4. FLAXSEED [Concomitant]
     Active Substance: FLAX SEED
     Indication: DEPRESSION
     Dosage: DOSE: 1000MG

REACTIONS (2)
  - Dizziness [Not Recovered/Not Resolved]
  - Abdominal pain upper [Not Recovered/Not Resolved]

NARRATIVE: CASE EVENT DATE: 20170224
